FAERS Safety Report 5186724-X (Version None)
Quarter: 2006Q4

REPORT INFORMATION
  Report Type: 
  Country: None (occurrence: None)
  Receive Date: 20061206
  Receipt Date: 20061121
  Transmission Date: 20070319
  Serious: Yes (Hospitalization)
  Sender: FDA-Public Use
  Company Number: WSDF_00583

PATIENT
  Age: 78 Year
  Sex: Male
  Weight: 80.7403 kg

DRUGS (4)
  1. WINRHO SDF [Suspect]
     Indication: IDIOPATHIC THROMBOCYTOPENIC PURPURA
     Dosage: 50 UG/KG ONCE IV
     Route: 042
     Dates: start: 20061003, end: 20061003
  2. PREDNISONE TAB [Concomitant]
  3. HYTRIN [Concomitant]
  4. FLONASE [Concomitant]

REACTIONS (12)
  - ANAEMIA [None]
  - ASTHENIA [None]
  - CHILLS [None]
  - COOMBS TEST POSITIVE [None]
  - DIALYSIS [None]
  - HAEMODIALYSIS [None]
  - LEUKOPENIA [None]
  - NEUTROPENIA [None]
  - PYREXIA [None]
  - RASH [None]
  - RENAL FAILURE ACUTE [None]
  - SEPSIS [None]
